FAERS Safety Report 10140063 (Version 1)
Quarter: 2014Q2

REPORT INFORMATION
  Report Type: Spontaneous
  Country: TW (occurrence: TW)
  Receive Date: 20140429
  Receipt Date: 20140429
  Transmission Date: 20141212
  Serious: Yes (Life-Threatening, Hospitalization, Other)
  Sender: FDA-Public Use
  Company Number: TW-ACTAVIS-2014-08215

PATIENT
  Age: 14 Year
  Sex: Male

DRUGS (5)
  1. CARBAMAZEPINE (UNKNOWN) [Suspect]
     Indication: EPILEPSY
     Dosage: UNK
     Route: 048
  2. CARBAMAZEPINE (UNKNOWN) [Suspect]
     Dosage: UNK
     Route: 042
  3. CLONAZEPAM (UNKNOWN) [Suspect]
     Indication: EPILEPSY
     Dosage: UNK
     Route: 048
  4. CLONAZEPAM (UNKNOWN) [Suspect]
     Dosage: UNK
     Route: 042
  5. PHENYTOIN (AMALLC) [Suspect]
     Indication: EPILEPSY
     Dosage: UNK
     Route: 042

REACTIONS (2)
  - Drug reaction with eosinophilia and systemic symptoms [Recovered/Resolved with Sequelae]
  - Myocarditis [Recovered/Resolved with Sequelae]
